FAERS Safety Report 7733538-X (Version None)
Quarter: 2011Q3

REPORT INFORMATION
  Report Type: 
  Country: None (occurrence: None)
  Receive Date: 20110901
  Receipt Date: 20110817
  Transmission Date: 20111222
  Serious: Yes (Hospitalization)
  Sender: FDA-Public Use
  Company Number: 1000023136

PATIENT
  Age: 89 Year
  Sex: Female

DRUGS (7)
  1. AMLODIN OD (AMLODIPINE BESILATE) (AMLODIPINE BESILATE) [Concomitant]
  2. ALLOPURINOL [Concomitant]
  3. ALFAROL (ALFACALCIDOL) (ALFACALCIDOL) [Concomitant]
  4. MEMANTINE [Suspect]
     Indication: DEMENTIA
     Dosage: 20 MG (20 MG,1 IN 1 D),ORAL
     Route: 048
     Dates: start: 20110701, end: 20110816
  5. OLMESARTAN MEDOXOMIL [Concomitant]
  6. ARICEPT [Concomitant]
  7. LIPOVAS (SIMVASTATIN) (SIMVASTATIN) [Concomitant]

REACTIONS (14)
  - ALANINE AMINOTRANSFERASE INCREASED [None]
  - BLOOD LACTATE DEHYDROGENASE INCREASED [None]
  - HEPATIC FUNCTION ABNORMAL [None]
  - GAMMA-GLUTAMYLTRANSFERASE INCREASED [None]
  - ASPARTATE AMINOTRANSFERASE INCREASED [None]
  - LIVER DISORDER [None]
  - WHITE BLOOD CELL COUNT INCREASED [None]
  - ARTHRALGIA [None]
  - DYSSTASIA [None]
  - BLOOD ALKALINE PHOSPHATASE INCREASED [None]
  - BLOOD UREA INCREASED [None]
  - NECK PAIN [None]
  - BLOOD BILIRUBIN INCREASED [None]
  - C-REACTIVE PROTEIN INCREASED [None]
